FAERS Safety Report 24278993 (Version 2)
Quarter: 2024Q4

REPORT INFORMATION
  Report Type: Spontaneous
  Country: JP (occurrence: JP)
  Receive Date: 20240903
  Receipt Date: 20241114
  Transmission Date: 20250115
  Serious: Yes (Hospitalization, Other)
  Sender: PFIZER
  Company Number: JP-PFIZER INC-202400219617

PATIENT
  Age: 70 Year
  Sex: Male

DRUGS (1)
  1. ELREXFIO [Suspect]
     Active Substance: ELRANATAMAB-BCMM
     Indication: Plasma cell myeloma
     Dosage: UNK
     Dates: start: 20240708

REACTIONS (9)
  - Pyrexia [Recovered/Resolved]
  - Hypoaesthesia [Unknown]
  - Anaphylactic shock [Unknown]
  - Eyelid function disorder [Unknown]
  - Pneumonia bacterial [Unknown]
  - Rash [Not Recovered/Not Resolved]
  - Erythema [Recovered/Resolved]
  - Pigmentation disorder [Not Recovered/Not Resolved]
  - Rash pruritic [Not Recovered/Not Resolved]

NARRATIVE: CASE EVENT DATE: 20240101
